FAERS Safety Report 8955043 (Version 1)
Quarter: 2012Q4

REPORT INFORMATION
  Report Type: 
  Country: US (occurrence: US)
  Receive Date: 20121207
  Receipt Date: 20121207
  Transmission Date: 20130627
  Serious: Yes (Death)
  Sender: FDA-Public Use
  Company Number: US-BRISTOL-MYERS SQUIBB COMPANY-17195512

PATIENT
  Age: 32 Year
  Sex: Male

DRUGS (10)
  1. OXYMORPHONE [Suspect]
  2. TRAZODONE HCL [Suspect]
  3. KEPPRA [Suspect]
  4. OXYCODONE [Suspect]
  5. DIAZEPAM [Suspect]
  6. NORDIAZEPAM [Suspect]
  7. MIRTAZAPINE [Suspect]
  8. OXAZEPAM [Suspect]
  9. TEMAZEPAM [Suspect]
  10. PREGABALIN [Suspect]

REACTIONS (2)
  - Toxicity to various agents [Fatal]
  - Brain injury [Fatal]
